FAERS Safety Report 15235702 (Version 2)
Quarter: 2018Q3

REPORT INFORMATION
  Report Type: Spontaneous
  Country: JP (occurrence: JP)
  Receive Date: 20180803
  Receipt Date: 20180809
  Transmission Date: 20181010
  Serious: Yes (Hospitalization)
  Sender: FDA-Public Use
  Company Number: JP-ROCHE-2164719

PATIENT
  Age: 76 Year
  Sex: Male

DRUGS (10)
  1. BELSOMRA [Concomitant]
     Active Substance: SUVOREXANT
     Dosage: DOSAGE IS UNCERTAIN.
     Route: 048
  2. ELIQUIS [Concomitant]
     Active Substance: APIXABAN
     Dosage: DOSAGE IS UNCERTAIN.
     Route: 048
  3. RISPERDAL [Suspect]
     Active Substance: RISPERIDONE
     Indication: RESTLESSNESS
     Route: 048
     Dates: start: 20180704
  4. CALBLOCK [Concomitant]
     Active Substance: AZELNIDIPINE
     Dosage: DOSAGE IS UNCERTAIN.
     Route: 048
  5. RIVOTRIL [Suspect]
     Active Substance: CLONAZEPAM
     Indication: PARKINSON^S DISEASE
     Route: 048
     Dates: start: 20180724
  6. SEROQUEL [Concomitant]
     Active Substance: QUETIAPINE FUMARATE
     Dosage: DOSAGE IS UNCERTAIN.
     Route: 048
  7. LANIRAPID [Concomitant]
     Active Substance: METILDIGOXIN
     Dosage: DOSAGE IS UNCERTAIN.
     Route: 048
  8. ARICEPT [Concomitant]
     Active Substance: DONEPEZIL HYDROCHLORIDE
     Dosage: DOSAGE IS UNCERTAIN.
     Route: 048
  9. RIVOTRIL [Suspect]
     Active Substance: CLONAZEPAM
     Indication: MUSCLE SPASMS
  10. MENESIT [Concomitant]
     Active Substance: CARBIDOPA\LEVODOPA
     Dosage: DOSAGE IS UNCERTAIN.
     Route: 048

REACTIONS (1)
  - Depressed level of consciousness [Recovering/Resolving]

NARRATIVE: CASE EVENT DATE: 20180725
